FAERS Safety Report 21608540 (Version 1)
Quarter: 2022Q4

REPORT INFORMATION
  Report Type: Report from Study
  Country: US (occurrence: US)
  Receive Date: 20221117
  Receipt Date: 20221117
  Transmission Date: 20230113
  Serious: No
  Sender: FDA-Public Use
  Company Number: US-ABBVIE-4157354

PATIENT
  Age: 59 Year
  Sex: Male
  Weight: 90.71 kg

DRUGS (5)
  1. HUMIRA [Suspect]
     Active Substance: ADALIMUMAB
     Indication: Colitis ulcerative
     Dosage: 40 MG
     Route: 058
  2. MODERNA COVID-19 VACCINE [Concomitant]
     Active Substance: ELASOMERAN
     Indication: COVID-19 immunisation
     Dosage: 1 ST DOSE ONCE
     Route: 030
     Dates: start: 2021, end: 2021
  3. MODERNA COVID-19 VACCINE [Concomitant]
     Active Substance: ELASOMERAN
     Indication: COVID-19 immunisation
     Dosage: 2 ND DOSE  ONCE
     Route: 030
  4. MODERNA COVID-19 VACCINE [Concomitant]
     Active Substance: ELASOMERAN
     Indication: COVID-19 immunisation
     Dosage: THIRD DOSE  ONCE
     Route: 030
  5. BALSALAZIDE [Concomitant]
     Active Substance: BALSALAZIDE
     Indication: Product used for unknown indication

REACTIONS (4)
  - Tinnitus [Recovered/Resolved]
  - Feeling abnormal [Recovered/Resolved]
  - Dry mouth [Recovered/Resolved]
  - Adverse drug reaction [Unknown]

NARRATIVE: CASE EVENT DATE: 20221006
